FAERS Safety Report 4452525-0 (Version None)
Quarter: 2004Q3

REPORT INFORMATION
  Report Type: 
  Country: None (occurrence: None)
  Receive Date: 20040813
  Receipt Date: 20040121
  Transmission Date: 20050211
  Serious: Yes (Other)
  Sender: FDA-Public Use
  Company Number: PHEH2003US11221

PATIENT
  Age: 70 Year
  Sex: Female
  Weight: 65.7716 kg

DRUGS (1)
  1. VISUDYNE [Suspect]
     Indication: MACULAR DEGENERATION
     Dosage: 2 MG/ML ONCE IV
     Route: 042
     Dates: start: 20031112, end: 20031112

REACTIONS (4)
  - PHOTOPHOBIA [None]
  - PHOTOPSIA [None]
  - VISION BLURRED [None]
  - VISUAL ACUITY REDUCED [None]
